FAERS Safety Report 5501979-7 (Version None)
Quarter: 2007Q4

REPORT INFORMATION
  Report Type: 
  Country: None (occurrence: None)
  Receive Date: 20071030
  Receipt Date: 20071022
  Transmission Date: 20080405
  Serious: Yes (Hospitalization)
  Sender: FDA-Public Use
  Company Number: A0684860A

PATIENT
  Age: 68 Year
  Sex: Female
  Weight: 62.3 kg

DRUGS (2)
  1. PAZOPANIB [Suspect]
     Indication: BREAST CANCER METASTATIC
     Dosage: 400MG PER DAY
     Route: 048
     Dates: start: 20070809
  2. LAPATINIB [Suspect]
     Indication: BREAST CANCER METASTATIC
     Dosage: 1000MG PER DAY
     Route: 048
     Dates: start: 20070809

REACTIONS (4)
  - ANAEMIA [None]
  - DIZZINESS [None]
  - HAEMORRHOIDAL HAEMORRHAGE [None]
  - VOMITING [None]
